FAERS Safety Report 10967527 (Version 1)
Quarter: 2015Q1

REPORT INFORMATION
  Report Type: Spontaneous
  Country: US (occurrence: US)
  Receive Date: 20150330
  Receipt Date: 20150330
  Transmission Date: 20150721
  Serious: No
  Sender: FDA-Public Use
  Company Number: US-PFIZER INC-2015108028

PATIENT
  Sex: Female

DRUGS (1)
  1. OGEN [Suspect]
     Active Substance: ESTROPIPATE
     Dosage: UNK

REACTIONS (5)
  - Myalgia [Unknown]
  - Bone pain [Unknown]
  - Therapeutic response unexpected [Unknown]
  - Pre-existing condition improved [Unknown]
  - Skin disorder [Unknown]
